FAERS Safety Report 8789269 (Version 1)
Quarter: 2012Q4

REPORT INFORMATION
  Report Type: Spontaneous
  Country: US (occurrence: None)
  Receive Date: 20120904
  Receipt Date: 20120904
  Transmission Date: 20130627
  Serious: Yes (Other)
  Sender: FDA-Public Use
  Company Number: US-1193859

PATIENT
  Age: 67 Year
  Sex: Female

DRUGS (1)
  1. TRAVATAN Z [Suspect]
     Indication: GLAUCOMA
     Route: 047
     Dates: start: 2007

REACTIONS (2)
  - Visual field defect [None]
  - Incorrect storage of drug [None]
